FAERS Safety Report 10660675 (Version 3)
Quarter: 2015Q1

REPORT INFORMATION
  Report Type: Spontaneous
  Country: US (occurrence: US)
  Receive Date: 20141217
  Receipt Date: 20150115
  Transmission Date: 20150720
  Serious: No
  Sender: FDA-Public Use
  Company Number: US-GLAXOSMITHKLINE-A1090107A

PATIENT
  Age: 43 Year
  Sex: Female

DRUGS (1)
  1. VOTRIENT [Suspect]
     Active Substance: PAZOPANIB HYDROCHLORIDE
     Indication: NEOPLASM MALIGNANT
     Dosage: 4 TABLETS (800 MG) DAILY AT LEAST 1 HOUR BEFORE OR 2 HOURS AFTER A MEAL
     Route: 048
     Dates: start: 20140913

REACTIONS (3)
  - Depression [Recovered/Resolved]
  - Nausea [Unknown]
  - Hair colour changes [Unknown]

NARRATIVE: CASE EVENT DATE: 20140914
